FAERS Safety Report 7030359-0 (Version None)
Quarter: 2010Q4

REPORT INFORMATION
  Report Type: 
  Country: None (occurrence: None)
  Receive Date: 20101006
  Receipt Date: 20070118
  Transmission Date: 20110411
  Serious: Yes (Hospitalization)
  Sender: FDA-Public Use
  Company Number: US-SANOFI-AVENTIS-F01200700068

PATIENT
  Age: 73 Year
  Sex: Female
  Weight: 81.4 kg

DRUGS (23)
  1. OXALIPLATIN [Suspect]
     Dosage: UNIT DOSE: 85 MG/M2
     Route: 041
     Dates: start: 20061108, end: 20061108
  2. OXALIPLATIN [Suspect]
     Dosage: UNIT DOSE: 85 MG/M2
     Route: 041
     Dates: start: 20060724, end: 20060724
  3. DOCETAXEL [Suspect]
     Dosage: UNIT DOSE: 75 MG/M2
     Route: 041
     Dates: start: 20061108, end: 20061108
  4. DOCETAXEL [Suspect]
     Dosage: UNIT DOSE: 75 MG/M2
     Route: 041
     Dates: start: 20060724, end: 20060724
  5. BEVACIZUMAB [Suspect]
     Dosage: UNIT DOSE: 15 MG/KG
     Route: 041
     Dates: start: 20070110, end: 20070110
  6. BEVACIZUMAB [Suspect]
     Dosage: UNIT DOSE: 15 MG/KG
     Route: 041
     Dates: start: 20060724, end: 20060724
  7. LANOXIN [Concomitant]
     Indication: ATRIAL FIBRILLATION
     Dosage: UNIT DOSE: .125 MG
     Route: 065
  8. LIPITOR [Concomitant]
     Dosage: UNIT DOSE: 10 MG
     Route: 048
  9. RYTHMOL [Concomitant]
     Indication: ATRIAL FIBRILLATION
     Dosage: DOSE TEXT: 300 MG (1/2 TABLET) THREE TIMES A DAYUNIT DOSE: 150 MG
     Route: 048
  10. TYLENOL [Concomitant]
     Dosage: DOSE TEXT: TAKEN OVER THE COUNTER AS NEEDED
     Route: 065
  11. TYLENOL [Concomitant]
     Indication: HEADACHE
     Dosage: DOSE TEXT: TAKEN OVER THE COUNTER AS NEEDED
     Route: 065
  12. ARICEPT [Concomitant]
     Dosage: UNIT DOSE: 5 MG
     Route: 048
     Dates: start: 20060710
  13. PERCOCET [Concomitant]
     Indication: PAIN
     Dosage: DOSE TEXT: 5/325 MG 1-2 TABLETS EVERY 6 HOURS
     Route: 048
  14. DECADRON [Concomitant]
     Indication: NAUSEA
     Dosage: DOSE TEXT: (PRE-MED) 8 MG 12 HOURS PRIOR TO TAXOTERE AND AFTERUNIT DOSE: 8 MG
     Route: 065
     Dates: start: 20060723, end: 20061109
  15. DECADRON [Concomitant]
     Indication: VOMITING
     Dosage: DOSE TEXT: (PRE-MED) 8 MG 12 HOURS PRIOR TO TAXOTERE AND AFTERUNIT DOSE: 8 MG
     Route: 065
     Dates: start: 20060723, end: 20061109
  16. ZOFRAN [Concomitant]
     Indication: NAUSEA
     Dosage: DOSE TEXT: 8 MG EVERY 12 HOURS AS NEEDED
     Route: 065
     Dates: start: 20060724
  17. ZOFRAN [Concomitant]
     Indication: VOMITING
     Dosage: DOSE TEXT: 8 MG EVERY 12 HOURS AS NEEDED
     Route: 065
     Dates: start: 20060724
  18. COUMADIN [Concomitant]
     Dosage: UNIT DOSE: 1 MG
     Route: 048
  19. COMPAZINE [Concomitant]
     Indication: NAUSEA
     Dosage: DOSE TEXT: 10 MG EVERY 6 HOURS AS NEEDED
     Route: 065
     Dates: start: 20060724
  20. COMPAZINE [Concomitant]
     Indication: VOMITING
     Dosage: DOSE TEXT: 10 MG EVERY 6 HOURS AS NEEDED
     Route: 065
     Dates: start: 20060724
  21. EMLA [Concomitant]
     Dosage: DOSE TEXT: APPLY TO IVAD SITE 1 HOUR PRIOR TO ACCESS
     Route: 061
     Dates: start: 20060724
  22. DIPHENHYDRAMINE HYDROCHLORIDE [Concomitant]
     Indication: RASH
     Dosage: UNIT DOSE: 25 MG
     Route: 065
     Dates: start: 20061011, end: 20061014
  23. TAGAMET [Concomitant]
     Indication: RASH
     Dosage: DOSE TEXT: TAKEN OVER THE COUNTER
     Route: 065
     Dates: start: 20061011, end: 20061014

REACTIONS (1)
  - TRANSIENT ISCHAEMIC ATTACK [None]
